FAERS Safety Report 5853809-1 (Version None)
Quarter: 2008Q3

REPORT INFORMATION
  Report Type: 
  Country: None (occurrence: None)
  Receive Date: 20080822
  Receipt Date: 20080807
  Transmission Date: 20090109
  Serious: Yes (Hospitalization)
  Sender: FDA-Public Use
  Company Number: US-AVENTIS-200814943US

PATIENT
  Age: 81 Year
  Sex: Female

DRUGS (2)
  1. LOVENOX [Suspect]
     Route: 051
     Dates: start: 20080701, end: 20080801
  2. COUMADIN [Suspect]
     Route: 048

REACTIONS (5)
  - BLOOD PRESSURE DECREASED [None]
  - HAEMATOCRIT DECREASED [None]
  - HAEMOGLOBIN DECREASED [None]
  - OPERATIVE HAEMORRHAGE [None]
  - PUNCTURE SITE HAEMORRHAGE [None]
